FAERS Safety Report 5301099-0 (Version None)
Quarter: 2007Q2

REPORT INFORMATION
  Report Type: 
  Country: None (occurrence: None)
  Receive Date: 20070418
  Receipt Date: 20070411
  Transmission Date: 20071010
  Serious: Yes (Death)
  Sender: FDA-Public Use
  Company Number: AU-ROXANE LABORATORIES, INC-2007-BP-04989RO

PATIENT
  Sex: Male

DRUGS (4)
  1. DIAZEPAM [Suspect]
  2. HEROIN [Suspect]
  3. NORDIAZEPAM [Suspect]
  4. AMISULPRIDE [Suspect]

REACTIONS (1)
  - DRUG TOXICITY [None]
